FAERS Safety Report 9433574 (Version 1)
Quarter: 2013Q3

REPORT INFORMATION
  Report Type: Spontaneous
  Country: DE (occurrence: DE)
  Receive Date: 20130731
  Receipt Date: 20130731
  Transmission Date: 20140515
  Serious: Yes (Hospitalization)
  Sender: FDA-Public Use
  Company Number: DE-WATSON-2013-13411

PATIENT
  Age: 59 Year
  Sex: Male

DRUGS (4)
  1. LERCANIDIPINE [Concomitant]
     Indication: HYPERTENSION
     Dosage: 1 DF, DAILY
     Route: 065
  2. LEVETIRACETAM (UNKNOWN) [Suspect]
     Indication: EPILEPSY
     Dosage: 1000 MG, BID, CUMULATIVE 40 DF
     Route: 048
     Dates: start: 20130413, end: 20130502
  3. ATACAND PLUS [Suspect]
     Indication: HYPERTENSION
     Dosage: 1 DF, DAILY
     Route: 048
  4. NEBIVOLOL [Concomitant]
     Indication: HYPERTENSION
     Dosage: 1 DF, DAILY
     Route: 065

REACTIONS (1)
  - Hyponatraemia [Recovered/Resolved]
